FAERS Safety Report 6864338-0 (Version None)
Quarter: 2010Q3

REPORT INFORMATION
  Report Type: 
  Country: None (occurrence: None)
  Receive Date: 20100721
  Receipt Date: 20080319
  Transmission Date: 20110219
  Serious: No
  Sender: FDA-Public Use
  Company Number: US-PFIZER INC-2008026465

PATIENT
  Sex: Female
  Weight: 56.363 kg

DRUGS (9)
  1. CHANTIX [Suspect]
     Indication: SMOKING CESSATION THERAPY
     Dates: start: 20080310
  2. VYTORIN [Suspect]
     Indication: BLOOD CHOLESTEROL INCREASED
     Dates: start: 20080310
  3. XANAX [Concomitant]
  4. PREDNISONE [Concomitant]
  5. PAXIL [Concomitant]
  6. ALL OTHER THERAPEUTIC PRODUCTS [Concomitant]
  7. ALBUTEROL [Concomitant]
  8. DRUG, UNSPECIFIED [Concomitant]
  9. ATROVENT [Concomitant]

REACTIONS (5)
  - FLUID RETENTION [None]
  - INAPPROPRIATE SCHEDULE OF DRUG ADMINISTRATION [None]
  - NAUSEA [None]
  - OEDEMA PERIPHERAL [None]
  - SOMNOLENCE [None]
